FAERS Safety Report 4704624-3 (Version None)
Quarter: 2005Q2

REPORT INFORMATION
  Report Type: 
  Country: None (occurrence: None)
  Receive Date: 20050630
  Receipt Date: 20050617
  Transmission Date: 20051028
  Serious: Yes (Other)
  Sender: FDA-Public Use
  Company Number: 2005090330

PATIENT
  Sex: Female

DRUGS (7)
  1. CELEBREX [Suspect]
     Indication: RHEUMATOID ARTHRITIS
  2. RELPAX [Suspect]
     Indication: MIGRAINE
     Dosage: (20 MG, AS NECESSARY), ORAL
     Route: 048
     Dates: start: 20050101
  3. XANAX [Concomitant]
  4. HYDROCODONE BITARTRATE [Concomitant]
  5. FLUCONAZOLE [Concomitant]
  6. PREVACID [Concomitant]
  7. CLINDAMYCIN HYDROCHLORIDE [Suspect]
     Indication: PROSTHESIS USER

REACTIONS (11)
  - BODY HEIGHT DECREASED [None]
  - BONE DISORDER [None]
  - CANDIDIASIS [None]
  - DISEASE RECURRENCE [None]
  - DRUG INEFFECTIVE [None]
  - GASTRIC DISORDER [None]
  - HIP ARTHROPLASTY [None]
  - KNEE ARTHROPLASTY [None]
  - MENOPAUSE [None]
  - MIGRAINE WITH AURA [None]
  - SHOULDER ARTHROPLASTY [None]
